FAERS Safety Report 4786649-5 (Version None)
Quarter: 2005Q3

REPORT INFORMATION
  Report Type: 
  Country: None (occurrence: None)
  Receive Date: 20050930
  Receipt Date: 20050915
  Transmission Date: 20060218
  Serious: Yes (Hospitalization)
  Sender: FDA-Public Use
  Company Number: US016000

PATIENT
  Age: 57 Year
  Sex: Female
  Weight: 68.4932 kg

DRUGS (6)
  1. ACTIQ [Suspect]
     Indication: BACK PAIN
     Dosage: 800 UG Q4HR BUCCAL
     Route: 002
     Dates: start: 20020101, end: 20040701
  2. DURAGESCIC [Concomitant]
  3. EFFEXOR [Concomitant]
  4. VASOTEC [Concomitant]
  5. PRILOSEC [Concomitant]
  6. MOBIC [Concomitant]

REACTIONS (3)
  - ABNORMAL BEHAVIOUR [None]
  - ANGER [None]
  - DEPENDENCE [None]
